FAERS Safety Report 20941947 (Version 1)
Quarter: 2022Q2

REPORT INFORMATION
  Report Type: Spontaneous
  Country: US (occurrence: US)
  Receive Date: 20220610
  Receipt Date: 20220610
  Transmission Date: 20220720
  Serious: No
  Sender: FDA-Public Use
  Company Number: US-GILEAD-2022-0583526

PATIENT
  Sex: Female

DRUGS (8)
  1. EPCLUSA [Suspect]
     Active Substance: SOFOSBUVIR\VELPATASVIR
     Indication: Chronic hepatitis C
     Dosage: 1 DOSAGE FORM, QD
     Route: 048
  2. PROPRANOLOL HYDROCHLORIDE [Concomitant]
     Active Substance: PROPRANOLOL HYDROCHLORIDE
  3. VITAMIN D NOS [Concomitant]
     Active Substance: VITAMIN D NOS
  4. HERBALS\TURMERIC [Concomitant]
     Active Substance: HERBALS\TURMERIC
  5. POTASSIUM [Concomitant]
     Active Substance: POTASSIUM
  6. MAGNESIUM [Concomitant]
     Active Substance: MAGNESIUM
  7. DIETARY SUPPLEMENT\HERBALS\MILK THISTLE [Concomitant]
     Active Substance: DIETARY SUPPLEMENT\HERBALS\MILK THISTLE
  8. VITAMINS [Concomitant]
     Active Substance: VITAMINS

REACTIONS (1)
  - Flatulence [Unknown]
